FAERS Safety Report 7998734-5 (Version None)
Quarter: 2011Q4

REPORT INFORMATION
  Report Type: 
  Country: None (occurrence: None)
  Receive Date: 20111221
  Receipt Date: 20111216
  Transmission Date: 20120403
  Serious: Yes (Hospitalization)
  Sender: FDA-Public Use
  Company Number: JP-ABBOTT-11P-087-0884047-00

PATIENT
  Sex: Male
  Weight: 93 kg

DRUGS (4)
  1. HUMIRA [Suspect]
     Dates: start: 20110510, end: 20110510
  2. TPN [Concomitant]
     Indication: CROHN'S DISEASE
  3. HUMIRA [Suspect]
     Indication: CROHN'S DISEASE
     Route: 058
     Dates: start: 20110426, end: 20110426
  4. HUMIRA [Suspect]
     Dates: start: 20110524

REACTIONS (2)
  - SUBILEUS [None]
  - VOMITING [None]
